FAERS Safety Report 24654007 (Version 1)
Quarter: 2024Q4

REPORT INFORMATION
  Report Type: Spontaneous
  Country: US (occurrence: None)
  Receive Date: 20241122
  Receipt Date: 20241122
  Transmission Date: 20250114
  Serious: Yes (Other)
  Sender: Public
  Company Number: None

PATIENT
  Age: 40 Year
  Sex: Female

DRUGS (1)
  1. BELIMUMAB [Suspect]
     Active Substance: BELIMUMAB
     Dosage: FREQUENCY : AS NEEDED;?
     Route: 041

REACTIONS (4)
  - Nausea [None]
  - Dizziness [None]
  - Gait disturbance [None]
  - Infusion related reaction [None]

NARRATIVE: CASE EVENT DATE: 20241118
